FAERS Safety Report 9233718 (Version 1)
Quarter: 2013Q1

REPORT INFORMATION
  Report Type: Spontaneous
  Country: US (occurrence: None)
  Receive Date: 20121031
  Receipt Date: 20121031
  Transmission Date: 20140127
  Serious: Yes (Hospitalization)
  Sender: FDA-Public Use
  Company Number: PHEH2012US013544

PATIENT
  Age: 51 Year
  Sex: Male
  Weight: 98 kg

DRUGS (3)
  1. GILENYA [Suspect]
     Indication: MULTIPLE SCLEROSIS
     Route: 048
     Dates: start: 20120629
  2. FAMPRIDINE (FAMPRIDINE) [Concomitant]
  3. STRATTERA (ATOMEXTINE HYDROCHLORIDE) [Concomitant]

REACTIONS (7)
  - Multiple sclerosis relapse [None]
  - Feeling abnormal [None]
  - Somnolence [None]
  - Sensation of heaviness [None]
  - Chest discomfort [None]
  - Fatigue [None]
  - Asthenia [None]
